FAERS Safety Report 5057559-3 (Version None)
Quarter: 2006Q2

REPORT INFORMATION
  Report Type: 
  Country: None (occurrence: None)
  Receive Date: 20060622
  Receipt Date: 20050926
  Transmission Date: 20061013
  Serious: Yes (Other)
  Sender: FDA-Public Use
  Company Number: US-JNJFOC-20050906742

PATIENT
  Age: 45 Year
  Sex: Female

DRUGS (1)
  1. FENTANYL [Suspect]
     Indication: INTENTIONAL DRUG MISUSE
     Dosage: 75 UG/HR, ORAL
     Route: 048
     Dates: start: 20050901

REACTIONS (4)
  - COUGH [None]
  - DRUG ABUSER [None]
  - DYSPNOEA [None]
  - SOMNOLENCE [None]
